FAERS Safety Report 6990177-6 (Version None)
Quarter: 2010Q3

REPORT INFORMATION
  Report Type: 
  Country: None (occurrence: None)
  Receive Date: 20100916
  Receipt Date: 20100517
  Transmission Date: 20110219
  Serious: Yes (Hospitalization, Other)
  Sender: FDA-Public Use
  Company Number: US-PFIZER INC-2010041484

PATIENT
  Sex: Female
  Weight: 47.61 kg

DRUGS (1)
  1. LYRICA [Suspect]
     Indication: FIBROMYALGIA
     Dosage: 150 MG, 3X/DAY
     Dates: end: 20100301

REACTIONS (6)
  - BLOOD POTASSIUM DECREASED [None]
  - CHEST PAIN [None]
  - ENDODONTIC PROCEDURE [None]
  - HYPERTENSION [None]
  - NAUSEA [None]
  - WEIGHT DECREASED [None]
